FAERS Safety Report 22526928 (Version 1)
Quarter: 2023Q2

REPORT INFORMATION
  Report Type: Other
  Country: PL (occurrence: None)
  Receive Date: 20230606
  Receipt Date: 20230606
  Transmission Date: 20230722
  Serious: Yes (Hospitalization)
  Sender: FDA-Public Use
  Company Number: PL-ROCHE-3361562

PATIENT
  Age: 40 Year
  Sex: Male
  Weight: 80 kg

DRUGS (9)
  1. OCRELIZUMAB [Suspect]
     Active Substance: OCRELIZUMAB
     Indication: Primary progressive multiple sclerosis
     Dosage: DOSE LAST STUDY DRUG ADMIN PRIOR AE AND SAE 600 MG?TOTAL VOLUME PRIOR AE AND SAE 500 ML?START DATE O
     Route: 042
     Dates: start: 20200828, end: 20200828
  2. OCRELIZUMAB [Suspect]
     Active Substance: OCRELIZUMAB
     Route: 042
     Dates: start: 20210831, end: 20210831
  3. OCRELIZUMAB [Suspect]
     Active Substance: OCRELIZUMAB
     Route: 042
     Dates: start: 20230302, end: 20230302
  4. OCRELIZUMAB [Suspect]
     Active Substance: OCRELIZUMAB
     Route: 042
     Dates: start: 20220218, end: 20220218
  5. OCRELIZUMAB [Suspect]
     Active Substance: OCRELIZUMAB
     Route: 042
     Dates: start: 20220811, end: 20220811
  6. OCRELIZUMAB [Suspect]
     Active Substance: OCRELIZUMAB
     Route: 042
     Dates: start: 20200911, end: 20200911
  7. OCRELIZUMAB [Suspect]
     Active Substance: OCRELIZUMAB
     Route: 042
     Dates: start: 20210305, end: 20210305
  8. SULPIRIDE [Concomitant]
     Active Substance: SULPIRIDE
     Dosage: YES
     Route: 048
     Dates: start: 2015
  9. TIOCOLIS [Concomitant]
     Dosage: YES
     Route: 048
     Dates: start: 20230221

REACTIONS (1)
  - Upper respiratory tract infection bacterial [Recovered/Resolved]

NARRATIVE: CASE EVENT DATE: 20230221
